FAERS Safety Report 6896777-6 (Version None)
Quarter: 2010Q3

REPORT INFORMATION
  Report Type: 
  Country: None (occurrence: None)
  Receive Date: 20100802
  Receipt Date: 20070306
  Transmission Date: 20110219
  Serious: Yes (Other)
  Sender: FDA-Public Use
  Company Number: US-PFIZER INC-2007010678

PATIENT
  Sex: Female
  Weight: 77.1 kg

DRUGS (8)
  1. LYRICA [Suspect]
     Indication: NEURALGIA
     Dates: start: 20061121, end: 20061209
  2. LYRICA [Suspect]
     Indication: PAIN
  3. TRAZODONE [Concomitant]
  4. LEVOXYL [Concomitant]
  5. SPIRONOLACTONE [Concomitant]
  6. ATACAND [Concomitant]
  7. ZOCOR [Concomitant]
  8. FOSAMAX [Concomitant]

REACTIONS (3)
  - ACCOMMODATION DISORDER [None]
  - DRUG INEFFECTIVE [None]
  - VISION BLURRED [None]
